FAERS Safety Report 8401265 (Version 3)
Quarter: 2012Q4

REPORT INFORMATION
  Report Type: 
  Country: NL (occurrence: NL)
  Receive Date: 20120210
  Receipt Date: 20120905
  Transmission Date: 20130627
  Serious: Yes (Hospitalization)
  Sender: FDA-Public Use
  Company Number: NL-MEDIMMUNE-MEDI-0014785

PATIENT
  Age: 17 Month
  Sex: Male
  Weight: 8.7 kg

DRUGS (3)
  1. SYNAGIS [Suspect]
     Indication: MYOPATHY
     Route: 030
  2. SYNAGIS [Suspect]
     Indication: MYOPATHY
     Route: 030
     Dates: start: 20111108, end: 20111108
  3. SYNAGIS [Suspect]
     Indication: MYOPATHY
     Route: 030
     Dates: start: 20111206

REACTIONS (7)
  - Pneumonia [Unknown]
  - Viral infection [Unknown]
  - Respiratory failure [Unknown]
  - Respiratory tract infection viral [Unknown]
  - Moraxella infection [Unknown]
  - Adenovirus infection [Unknown]
  - Rhinovirus infection [Unknown]
